FAERS Safety Report 4759782-1 (Version None)
Quarter: 2005Q3

REPORT INFORMATION
  Report Type: 
  Country: None (occurrence: None)
  Receive Date: 20050829
  Receipt Date: 20050607
  Transmission Date: 20060218
  Serious: No
  Sender: FDA-Public Use
  Company Number: S05-USA-02905-01

PATIENT
  Age: 46 Year
  Sex: Female

DRUGS (11)
  1. CAMPRAL [Suspect]
     Indication: ALCOHOLISM
     Dosage: 666 MG TID PO
     Route: 048
     Dates: start: 20050101
  2. WELLBUTRIN [Concomitant]
  3. PAXIL (PAROXETINE HYDOCHLORIDE) [Concomitant]
  4. PROTONIX [Concomitant]
  5. CORTISONE ACETATE TAB [Concomitant]
  6. LITHIUM CARBONATE [Concomitant]
  7. TRAZODONE [Concomitant]
  8. HYDROXYZINE [Concomitant]
  9. ASPIRIN [Concomitant]
  10. FOLIC ACID [Concomitant]
  11. MULTI-VITAMIN [Concomitant]

REACTIONS (2)
  - EYELID OEDEMA [None]
  - OEDEMA PERIPHERAL [None]
